FAERS Safety Report 9459912 (Version 1)
Quarter: 2013Q3

REPORT INFORMATION
  Report Type: Spontaneous
  Country: RU (occurrence: None)
  Receive Date: 20130812
  Receipt Date: 20130812
  Transmission Date: 20140515
  Serious: Yes (Other)
  Sender: FDA-Public Use
  Company Number: VALP20130008

PATIENT
  Age: 26 Year
  Sex: Female

DRUGS (2)
  1. PHENOBARBITA [Suspect]
     Indication: PETIT MAL EPILEPSY
     Route: 048
  2. DEPAKINE CHRONO [Suspect]
     Route: 048

REACTIONS (3)
  - Paradoxical drug reaction [None]
  - Loss of consciousness [None]
  - Grand mal convulsion [None]
